FAERS Safety Report 4641532-0 (Version None)
Quarter: 2005Q2

REPORT INFORMATION
  Report Type: 
  Country: None (occurrence: None)
  Receive Date: 20050421
  Receipt Date: 20050323
  Transmission Date: 20051028
  Serious: Yes (Hospitalization)
  Sender: FDA-Public Use
  Company Number: JP-ROCHE-400403

PATIENT
  Age: 29 Year
  Sex: Female

DRUGS (8)
  1. TAMIFLU [Suspect]
     Route: 048
     Dates: start: 20050302, end: 20050304
  2. CLEMASTINE FUMARATE [Concomitant]
     Dosage: TRADE NAME: CLEMANIL
     Route: 048
  3. DL-METHYLEPHEDRINE [Concomitant]
     Dosage: TRADE NAME: METHY-F.
     Route: 048
  4. SCOPOLIA EXTRACT [Concomitant]
     Dosage: FORM: ORAL NOS.
     Route: 048
  5. PHENOBAL [Concomitant]
     Dosage: FORM: ORAL NOS.
     Route: 048
  6. ACETAMINOFEN [Concomitant]
     Dosage: FORM: ORAL NOS.
     Route: 048
  7. CODEINE [Concomitant]
     Dosage: PHOSPHATE. FORM: ORAL NOS.
     Route: 048
  8. ACETAMINOPHEN [Concomitant]
     Dosage: TRADE: COCARL.
     Route: 048

REACTIONS (6)
  - DIARRHOEA [None]
  - DRUG ERUPTION [None]
  - GENERALISED ERYTHEMA [None]
  - SCAR [None]
  - SCRATCH [None]
  - URTICARIA [None]
